FAERS Safety Report 4956309-6 (Version None)
Quarter: 2006Q1

REPORT INFORMATION
  Report Type: 
  Country: None (occurrence: None)
  Receive Date: 20060323
  Receipt Date: 20060313
  Transmission Date: 20060701
  Serious: Yes (Hospitalization)
  Sender: FDA-Public Use
  Company Number: 2006035428

PATIENT
  Sex: Male

DRUGS (2)
  1. PIROXICAM [Suspect]
     Indication: BACK PAIN
     Dosage: 1 VIAL (PRN), INTRAMUSCULAR
     Route: 030
  2. THIOCOLCHICOSIDE (THIOCOLCHICOSIDE) [Suspect]
     Indication: BACK PAIN
     Dosage: 1 VIAL (PRN), INTRAMUSCULAR
     Route: 030
     Dates: start: 20060309, end: 20060309

REACTIONS (3)
  - HYPERHIDROSIS [None]
  - HYPOTENSION [None]
  - PARAESTHESIA [None]
